FAERS Safety Report 19641539 (Version 3)
Quarter: 2021Q4

REPORT INFORMATION
  Report Type: Report from Study
  Country: US (occurrence: US)
  Receive Date: 20210730
  Receipt Date: 20211015
  Transmission Date: 20220303
  Serious: Yes (Other)
  Sender: FDA-Public Use
  Company Number: US-COVIS PHARMA GMBH-2021COV23429

PATIENT
  Age: 17 Year
  Sex: Female
  Weight: 43.9 kg

DRUGS (17)
  1. FERUMOXYTOL NON-STOICHIOMETRIC MAGNETITE [Suspect]
     Active Substance: FERUMOXYTOL NON-STOICHIOMETRIC MAGNETITE
     Indication: Iron deficiency anaemia
     Dosage: 59 MG ADMINISTERED FOR 3 MINUTES ONLY
     Route: 042
     Dates: start: 20210616, end: 20210616
  2. GABAPENTIN [Concomitant]
     Active Substance: GABAPENTIN
     Indication: Fibromyalgia
     Route: 048
     Dates: start: 20190313
  3. GABAPENTIN [Concomitant]
     Active Substance: GABAPENTIN
     Indication: Seizure
  4. ferrous iron sulfate [Concomitant]
     Indication: Anaemia
     Dates: start: 20200918
  5. ferrous iron sulfate [Concomitant]
     Indication: Iron deficiency anaemia
  6. FAMOTIDINE [Concomitant]
     Active Substance: FAMOTIDINE
     Indication: Impaired gastric emptying
     Dates: start: 20200511
  7. LEVOCETIRIZINE [Concomitant]
     Active Substance: LEVOCETIRIZINE
     Indication: Seasonal allergy
     Dates: start: 20210413
  8. SYMBICORT [Concomitant]
     Active Substance: BUDESONIDE\FORMOTEROL FUMARATE DIHYDRATE
     Indication: Asthma
     Dosage: 160/4.5MCG
     Dates: start: 20210413
  9. SPIRIVA RESPIMAT [Concomitant]
     Active Substance: TIOTROPIUM BROMIDE
     Indication: Asthma
     Dates: start: 20210413
  10. PANTOPRAZOLE [Concomitant]
     Active Substance: PANTOPRAZOLE
     Indication: Impaired gastric emptying
     Route: 048
     Dates: start: 20191104
  11. NORETHINDRONE [Concomitant]
     Active Substance: NORETHINDRONE
     Indication: Impaired gastric emptying
     Route: 048
     Dates: start: 20200916
  12. MONTELUKAST [Concomitant]
     Active Substance: MONTELUKAST SODIUM
     Indication: Seasonal allergy
     Route: 048
     Dates: start: 2017
  13. ZOFRAN [Concomitant]
     Active Substance: ONDANSETRON HYDROCHLORIDE
     Indication: Nausea
     Dosage: PRN
     Route: 048
     Dates: start: 20181205
  14. ZOFRAN [Concomitant]
     Active Substance: ONDANSETRON HYDROCHLORIDE
     Indication: Vomiting
  15. ATROVENT HFA [Concomitant]
     Active Substance: IPRATROPIUM BROMIDE
     Indication: Asthma
     Dosage: PRN
     Dates: start: 20200814
  16. DICYCLOMINE [Concomitant]
     Active Substance: DICYCLOMINE HYDROCHLORIDE
     Indication: Impaired gastric emptying
     Dosage: PRN
     Route: 048
     Dates: start: 20191031
  17. FLUDROCORTISONE [Concomitant]
     Active Substance: FLUDROCORTISONE
     Indication: Postural orthostatic tachycardia syndrome
     Route: 048
     Dates: start: 20210208

REACTIONS (1)
  - Anaphylactic reaction [Recovered/Resolved]

NARRATIVE: CASE EVENT DATE: 20210616
